FAERS Safety Report 23685760 (Version 1)
Quarter: 2024Q1

REPORT INFORMATION
  Report Type: Spontaneous
  Country: GB (occurrence: GB)
  Receive Date: 20240329
  Receipt Date: 20240329
  Transmission Date: 20240410
  Serious: Yes (Hospitalization, Other)
  Sender: FDA-Public Use
  Company Number: GB-GKKIN-20180419-PI408424

PATIENT

DRUGS (3)
  1. PREDNISOLONE [Suspect]
     Active Substance: PREDNISOLONE
     Indication: Colitis ulcerative
     Dosage: UNK
     Route: 048
  2. MERCAPTOPURINE [Suspect]
     Active Substance: MERCAPTOPURINE
     Indication: Colitis ulcerative
     Dosage: 75 MG, QD
     Route: 065
  3. MESALAMINE [Concomitant]
     Active Substance: MESALAMINE
     Indication: Colitis ulcerative
     Dosage: 1 G, QD
     Route: 048

REACTIONS (6)
  - Sepsis [Unknown]
  - Myelosuppression [Recovered/Resolved]
  - Cytomegalovirus colitis [Recovered/Resolved]
  - Hepatitis [Recovered/Resolved]
  - Toxicity to various agents [Unknown]
  - Cytomegalovirus infection [Recovered/Resolved]
